FAERS Safety Report 4325641-1 (Version None)
Quarter: 2004Q1

REPORT INFORMATION
  Report Type: 
  Country: None (occurrence: None)
  Receive Date: 20040324
  Receipt Date: 20040315
  Transmission Date: 20041129
  Serious: Yes (Hospitalization)
  Sender: FDA-Public Use
  Company Number: 2003CG00820

PATIENT
  Age: 83 Year
  Sex: Female

DRUGS (8)
  1. NEXIUM [Suspect]
     Dates: end: 20030409
  2. EUPHYTOSE [Suspect]
     Dates: end: 20030409
  3. GINKOR [Suspect]
     Dosage: 140 MG + 3 G
     Dates: end: 20030409
  4. KARDEGIC [Suspect]
     Dates: end: 20030409
  5. BECOZYME [Suspect]
     Dates: start: 20030101
  6. MAGNESIUM [Suspect]
     Dates: start: 20030101
  7. LASIX [Concomitant]
  8. LORAZEPAM [Concomitant]

REACTIONS (11)
  - ANTINUCLEAR ANTIBODY POSITIVE [None]
  - ASCITES [None]
  - ASTHENIA [None]
  - CYTOLYTIC HEPATITIS [None]
  - FIBROSIS [None]
  - GRANULOMA [None]
  - HEPATIC CIRRHOSIS [None]
  - HEPATOSPLENOMEGALY [None]
  - HEPATOTOXICITY [None]
  - THROMBOCYTOPENIA [None]
  - WEIGHT DECREASED [None]
